FAERS Safety Report 15892659 (Version 1)
Quarter: 2019Q1

REPORT INFORMATION
  Report Type: Spontaneous
  Country: CA (occurrence: CA)
  Receive Date: 20190130
  Receipt Date: 20190130
  Transmission Date: 20190417
  Serious: No
  Sender: FDA-Public Use
  Company Number: CA-EXELIXIS-CABO-18017074

PATIENT
  Age: 51 Year
  Sex: Male

DRUGS (2)
  1. CABOMETYX [Suspect]
     Active Substance: CABOZANTINIB S-MALATE
     Dosage: 30 MG, UNK FOR ONE WEEK ALTERNATING WITH ONE WEEK OFF
     Route: 048
     Dates: end: 2018
  2. CABOMETYX [Suspect]
     Active Substance: CABOZANTINIB S-MALATE
     Indication: RENAL CELL CARCINOMA
     Dosage: 60 MG, QD
     Route: 048
     Dates: start: 201807

REACTIONS (4)
  - Diarrhoea [Unknown]
  - Skin exfoliation [Unknown]
  - Nausea [Unknown]
  - Incorrect dose administered [Unknown]

NARRATIVE: CASE EVENT DATE: 201808
